FAERS Safety Report 8746095 (Version 2)
Quarter: 2012Q4

REPORT INFORMATION
  Report Type: 
  Country: US (occurrence: US)
  Receive Date: 20120827
  Receipt Date: 20120919
  Transmission Date: 20130627
  Serious: No
  Sender: FDA-Public Use
  Company Number: US-B.I. PHARMACEUTICALS,INC./RIDGEFIELD-2012-BP-20537BP

PATIENT
  Age: 71 Year
  Sex: Female
  Weight: 81.65 kg

DRUGS (6)
  1. COMBIVENT [Suspect]
     Indication: CHRONIC OBSTRUCTIVE PULMONARY DISEASE
     Dosage: 8 puf
     Route: 055
     Dates: start: 20100217
  2. LOPRESSOR [Concomitant]
     Indication: HYPERTENSION
     Dates: start: 201108
  3. ASA [Concomitant]
     Dates: start: 201108
  4. VENTOLIN [Concomitant]
     Indication: CHRONIC OBSTRUCTIVE PULMONARY DISEASE
     Route: 055
     Dates: start: 201108
  5. ALBUTEROL [Concomitant]
     Dates: start: 20100228
  6. METOPROLOL TARTRATE [Concomitant]
     Dosage: 200 mg
     Dates: start: 20101029

REACTIONS (2)
  - Throat irritation [Recovered/Resolved]
  - Product quality issue [Recovered/Resolved]
